FAERS Safety Report 5143476-7 (Version None)
Quarter: 2006Q4

REPORT INFORMATION
  Report Type: 
  Country: None (occurrence: None)
  Receive Date: 20061103
  Receipt Date: 20061026
  Transmission Date: 20070319
  Serious: Yes (Life-Threatening)
  Sender: FDA-Public Use
  Company Number: BR-GLAXOSMITHKLINE-A0625932A

PATIENT
  Age: 20 Year
  Sex: Female

DRUGS (1)
  1. PARNATE [Suspect]
     Indication: SUICIDE ATTEMPT
     Dosage: 40MG SINGLE DOSE
     Route: 065
     Dates: start: 20061026, end: 20061026

REACTIONS (2)
  - INTENTIONAL OVERDOSE [None]
  - SUICIDE ATTEMPT [None]
